FAERS Safety Report 6541121-7 (Version None)
Quarter: 2010Q1

REPORT INFORMATION
  Report Type: 
  Country: None (occurrence: None)
  Receive Date: 20100118
  Receipt Date: 20091230
  Transmission Date: 20100710
  Serious: No
  Sender: FDA-Public Use
  Company Number: US-JNJFOC-20091103028

PATIENT
  Sex: Male
  Weight: 111.13 kg

DRUGS (11)
  1. INVEGA SUSTENNA [Suspect]
     Indication: SCHIZOPHRENIA
     Route: 030
     Dates: start: 20091001
  2. INVEGA SUSTENNA [Suspect]
     Route: 030
     Dates: start: 20091001
  3. TRICOR [Concomitant]
     Indication: BLOOD CHOLESTEROL INCREASED
     Dates: start: 20050101
  4. JANUVIA [Concomitant]
     Indication: DIABETES MELLITUS
     Dates: start: 20050101
  5. POTASSIUM CHLORIDE [Concomitant]
     Indication: CARDIAC DISORDER
     Dates: start: 20050101
  6. FISH OIL [Concomitant]
     Indication: MEDICAL DIET
  7. CINNAMON [Concomitant]
     Indication: MEDICAL DIET
  8. PLETAL [Concomitant]
     Indication: PERIPHERAL VASCULAR DISORDER
     Dates: start: 20080101
  9. KLONOPIN [Concomitant]
     Indication: STRESS
     Dates: start: 20080101
  10. TYLENOL (CAPLET) [Concomitant]
     Indication: DRUG USE FOR UNKNOWN INDICATION
  11. FOLIC ACID [Concomitant]
     Indication: DRUG USE FOR UNKNOWN INDICATION

REACTIONS (4)
  - CYSTITIS [None]
  - HEART RATE DECREASED [None]
  - POLLAKIURIA [None]
  - URINE OUTPUT INCREASED [None]
